FAERS Safety Report 6898931-6 (Version None)
Quarter: 2010Q3

REPORT INFORMATION
  Report Type: 
  Country: None (occurrence: None)
  Receive Date: 20100802
  Receipt Date: 20071213
  Transmission Date: 20110219
  Serious: No
  Sender: FDA-Public Use
  Company Number: US-PFIZER INC-2007093042

PATIENT
  Sex: Female
  Weight: 63.1 kg

DRUGS (5)
  1. LYRICA [Suspect]
     Indication: FIBROMYALGIA
     Route: 048
     Dates: start: 20071001, end: 20071001
  2. OXYCONTIN [Concomitant]
  3. SOMA [Concomitant]
  4. PERCOCET [Concomitant]
     Dosage: 10/650MG FOUR TIMES A DAY
  5. NAPROXEN [Concomitant]

REACTIONS (1)
  - RASH MACULO-PAPULAR [None]
